FAERS Safety Report 21867541 (Version 2)
Quarter: 2023Q1

REPORT INFORMATION
  Report Type: Spontaneous
  Country: US (occurrence: US)
  Receive Date: 20230116
  Receipt Date: 20230215
  Transmission Date: 20230418
  Serious: Yes (Other)
  Sender: FDA-Public Use
  Company Number: US-BEH-2023154075

PATIENT
  Sex: Female
  Weight: 69 kg

DRUGS (3)
  1. HAEGARDA [Suspect]
     Active Substance: HUMAN C1-ESTERASE INHIBITOR
     Indication: Hereditary angioedema
     Dosage: 4000 INTERNATIONAL UNIT EVERY 3 TO 4 DAYS
     Route: 058
     Dates: start: 20221211
  2. HAEGARDA [Suspect]
     Active Substance: HUMAN C1-ESTERASE INHIBITOR
     Indication: Prophylaxis
     Dosage: 4000 INTERNATIONAL UNIT, BIW
     Route: 058
     Dates: start: 202212
  3. VITAMINS NOS [Concomitant]
     Active Substance: VITAMINS

REACTIONS (8)
  - Injection site pain [Unknown]
  - Blood pressure increased [Unknown]
  - Hereditary angioedema [Unknown]
  - Dry skin [Unknown]
  - Infusion site bruising [Unknown]
  - Infusion site pain [Unknown]
  - Dyspnoea [Unknown]
  - Hypertension [Recovered/Resolved]
